FAERS Safety Report 8198467-9 (Version None)
Quarter: 2012Q1

REPORT INFORMATION
  Report Type: 
  Country: None (occurrence: None)
  Receive Date: 20120309
  Receipt Date: 20120306
  Transmission Date: 20120608
  Serious: Yes (Life-Threatening, Hospitalization)
  Sender: FDA-Public Use
  Company Number: PHHY2012AU014304

PATIENT
  Sex: Female

DRUGS (15)
  1. ASMOL [Concomitant]
     Dosage: 100 UG/ DOSE 200 DOSES
  2. PRILOSEC [Concomitant]
     Dosage: 20 MG, BID
  3. CLARITHROMYCIN [Concomitant]
     Dosage: 250 MG, BID
     Route: 048
  4. SPIRIVA [Concomitant]
     Dosage: 18 UG,
  5. VENTOLIN [Concomitant]
     Dosage: 100 UG/ DOSE 200 DOSES BID
  6. FUROSEMIDE [Concomitant]
     Dosage: 40 MG, UNK
     Route: 048
  7. ZOLEDRONOC ACID [Suspect]
     Dosage: 5 MG, UNK
     Route: 042
  8. SIMBICORT TURBUHALER [Concomitant]
     Dosage: 1 DF, BID
  9. ZOLEDRONOC ACID [Suspect]
     Dosage: 5 MG, UNK
     Route: 042
     Dates: start: 20110207
  10. ISOPTIN [Concomitant]
     Dosage: 40 MG, UNK
  11. SPIRONOLACTONE [Concomitant]
     Dosage: 25 MG, UNK
     Route: 048
  12. DURATEARS [Concomitant]
     Dosage: 3.5 G, BID
  13. ALBUTEROL [Concomitant]
     Dosage: 2.5 MG/2.5 ML
  14. MAXOLON [Concomitant]
     Dosage: 10 MG, TID
  15. BACTROBAN [Concomitant]
     Dosage: 15 G, BID

REACTIONS (3)
  - APPARENT DEATH [None]
  - LUNG INFECTION [None]
  - CARDIAC FAILURE [None]
